FAERS Safety Report 5787846-2 (Version None)
Quarter: 2008Q2

REPORT INFORMATION
  Report Type: 
  Country: None (occurrence: None)
  Receive Date: 20080624
  Receipt Date: 20080624
  Transmission Date: 20081010
  Serious: Yes (Life-Threatening, Disabling)
  Sender: FDA-Public Use
  Company Number: None

PATIENT
  Age: 20 Year
  Sex: Female
  Weight: 56.6996 kg

DRUGS (1)
  1. NUVARING [Suspect]
     Indication: CONTRACEPTION
     Dosage: 1 NURVARING AT.015 A DAY  KEEP IN 21 DAYS  VAG
     Route: 067

REACTIONS (2)
  - KNEE OPERATION [None]
  - PULMONARY EMBOLISM [None]
